FAERS Safety Report 7516541-4 (Version None)
Quarter: 2011Q2

REPORT INFORMATION
  Report Type: 
  Country: None (occurrence: None)
  Receive Date: 20110601
  Receipt Date: 20110512
  Transmission Date: 20111010
  Serious: Yes (Other)
  Sender: FDA-Public Use
  Company Number: B0719110A

PATIENT
  Age: 80 Year
  Sex: Male
  Weight: 47 kg

DRUGS (4)
  1. MEROPENEM [Concomitant]
     Route: 042
  2. ZOVIRAX [Suspect]
     Indication: HERPES ZOSTER
     Dosage: 500MG PER DAY
     Route: 042
     Dates: start: 20110411, end: 20110418
  3. ZYVOX [Suspect]
     Indication: STAPHYLOCOCCAL INFECTION
     Dosage: 1200MG PER DAY
     Route: 042
     Dates: start: 20110331, end: 20110413
  4. ALPROSTADIL [Concomitant]
     Route: 042

REACTIONS (1)
  - PLATELET COUNT DECREASED [None]
